FAERS Safety Report 7827321-4 (Version None)
Quarter: 2011Q4

REPORT INFORMATION
  Report Type: 
  Country: None (occurrence: None)
  Receive Date: 20111020
  Receipt Date: 20111014
  Transmission Date: 20120403
  Serious: Yes (Other)
  Sender: FDA-Public Use
  Company Number: IT-PFIZER INC-2011249345

PATIENT
  Sex: Female

DRUGS (1)
  1. IRINOTECAN HCL [Suspect]

REACTIONS (6)
  - HYPERTRANSAMINASAEMIA [None]
  - HYPERGLYCAEMIA [None]
  - NAUSEA [None]
  - ANAEMIA [None]
  - NEUTROPENIA [None]
  - THROMBOCYTOPENIA [None]
